FAERS Safety Report 6605087-3 (Version None)
Quarter: 2010Q1

REPORT INFORMATION
  Report Type: 
  Country: None (occurrence: None)
  Receive Date: 20100226
  Receipt Date: 20100216
  Transmission Date: 20100710
  Serious: Yes (Death)
  Sender: FDA-Public Use
  Company Number: GXKR2010GB01908

PATIENT
  Age: 3 Month
  Sex: Male
  Weight: 5.1 kg

DRUGS (2)
  1. METHADONE (NGX) [Suspect]
     Route: 065
  2. DIAZEPAM [Suspect]
     Route: 065

REACTIONS (2)
  - DRUG TOXICITY [None]
  - RESPIRATORY DEPRESSION [None]
